FAERS Safety Report 25601341 (Version 2)
Quarter: 2025Q3

REPORT INFORMATION
  Report Type: Spontaneous
  Country: US (occurrence: US)
  Receive Date: 20250724
  Receipt Date: 20250801
  Transmission Date: 20251020
  Serious: No
  Sender: SANOFI AVENTIS
  Company Number: US-SA-2025SA211041

PATIENT
  Age: 69 Year
  Sex: Female

DRUGS (13)
  1. DUPIXENT [Suspect]
     Active Substance: DUPILUMAB
     Indication: Asthma
     Dosage: 300 MG, QOW
     Route: 058
     Dates: start: 202506
  2. BIOTIN [Concomitant]
     Active Substance: BIOTIN
  3. FLAXSEED [Concomitant]
     Active Substance: FLAX SEED
  4. OMEGA 3 [Concomitant]
     Active Substance: CAPSAICIN
  5. POTASSIUM [Concomitant]
     Active Substance: POTASSIUM
  6. TYLENOL [Concomitant]
     Active Substance: ACETAMINOPHEN
  7. EPINEPHRINE [Concomitant]
     Active Substance: EPINEPHRINE
  8. HYDROCHLOROTHIAZIDE [Concomitant]
     Active Substance: HYDROCHLOROTHIAZIDE
  9. LOSARTAN POTASSIUM [Concomitant]
     Active Substance: LOSARTAN POTASSIUM
  10. TRELEGY ELLIPTA [Concomitant]
     Active Substance: FLUTICASONE FUROATE\UMECLIDINIUM BROMIDE\VILANTEROL TRIFENATATE
  11. VITAMIN B CO. [Concomitant]
  12. VITAMIN D NOS [Concomitant]
     Active Substance: CHOLECALCIFEROL\ERGOCALCIFEROL
  13. ALBUTEROL SULFATE\IPRATROPIUM BROMIDE [Concomitant]
     Active Substance: ALBUTEROL SULFATE\IPRATROPIUM BROMIDE

REACTIONS (3)
  - Fatigue [Unknown]
  - Dyspnoea [Unknown]
  - Inappropriate schedule of product administration [Unknown]

NARRATIVE: CASE EVENT DATE: 20250101
